FAERS Safety Report 10676852 (Version 1)
Quarter: 2014Q4

REPORT INFORMATION
  Report Type: Spontaneous
  Country: PL (occurrence: PL)
  Receive Date: 20141226
  Receipt Date: 20141226
  Transmission Date: 20150529
  Serious: Yes (Hospitalization, Other)
  Sender: FDA-Public Use
  Company Number: PL-JNJFOC-20141210008

PATIENT
  Age: 69 Year
  Sex: Male

DRUGS (4)
  1. PREDNISONE. [Suspect]
     Active Substance: PREDNISONE
     Indication: PROSTATE CANCER
     Route: 065
     Dates: start: 201406, end: 20141016
  2. ZOLEDRONIC ACID [Suspect]
     Active Substance: ZOLEDRONIC ACID
     Indication: PROSTATE CANCER
     Route: 042
     Dates: start: 201402, end: 20141016
  3. NEBIVOLOL [Concomitant]
     Active Substance: NEBIVOLOL
     Indication: HYPERTENSION
     Route: 065
  4. ZYTIGA [Suspect]
     Active Substance: ABIRATERONE ACETATE
     Indication: PROSTATE CANCER
     Route: 048
     Dates: start: 201406, end: 20141016

REACTIONS (14)
  - Pulmonary hypertension [Not Recovered/Not Resolved]
  - Pyelocaliectasis [Unknown]
  - Supraventricular tachycardia [Unknown]
  - Tachycardia [Recovered/Resolved]
  - Anaemia [Unknown]
  - Dyspepsia [Recovered/Resolved]
  - Pleural effusion [Recovered/Resolved]
  - Gynaecomastia [Unknown]
  - Dehydration [Unknown]
  - Prostate cancer metastatic [Unknown]
  - Pulmonary oedema [Unknown]
  - Circulatory collapse [Unknown]
  - Blood pressure decreased [Unknown]
  - Tachycardia paroxysmal [Unknown]

NARRATIVE: CASE EVENT DATE: 201411
